FAERS Safety Report 13991701 (Version 3)
Quarter: 2020Q1

REPORT INFORMATION
  Report Type: Spontaneous
  Country: US (occurrence: US)
  Receive Date: 20170920
  Receipt Date: 20200220
  Transmission Date: 20200409
  Serious: No
  Sender: FDA-Public Use
  Company Number: US-JNJFOC-20170809008

PATIENT
  Sex: Male

DRUGS (24)
  1. RISPERDAL [Suspect]
     Active Substance: RISPERIDONE
     Indication: OPPOSITIONAL DEFIANT DISORDER
  2. RISPERDAL [Suspect]
     Active Substance: RISPERIDONE
     Indication: INSOMNIA
  3. RISPERDAL M-TAB [Suspect]
     Active Substance: RISPERIDONE
     Indication: AGITATION
  4. RISPERDAL [Suspect]
     Active Substance: RISPERIDONE
     Indication: AGITATION
     Dosage: IN VARYING DOSES OF 2 MG AND 3 MG
     Route: 048
     Dates: start: 20091015, end: 20130227
  5. RISPERIDONE. [Suspect]
     Active Substance: RISPERIDONE
     Indication: OPPOSITIONAL DEFIANT DISORDER
  6. RISPERIDONE. [Suspect]
     Active Substance: RISPERIDONE
     Indication: DRUG THERAPY
  7. RISPERIDONE. [Suspect]
     Active Substance: RISPERIDONE
     Indication: INSOMNIA
  8. RISPERDAL M-TAB [Suspect]
     Active Substance: RISPERIDONE
     Indication: DRUG THERAPY
  9. RISPERDAL M-TAB [Suspect]
     Active Substance: RISPERIDONE
     Indication: INSOMNIA
  10. RISPERIDONE. [Suspect]
     Active Substance: RISPERIDONE
     Indication: ATTENTION DEFICIT/HYPERACTIVITY DISORDER
  11. RISPERIDONE. [Suspect]
     Active Substance: RISPERIDONE
     Indication: AGITATION
  12. RISPERDAL [Suspect]
     Active Substance: RISPERIDONE
     Indication: ATTENTION DEFICIT/HYPERACTIVITY DISORDER
  13. RISPERIDONE. [Suspect]
     Active Substance: RISPERIDONE
     Indication: AGITATION
  14. RISPERIDONE. [Suspect]
     Active Substance: RISPERIDONE
     Indication: OPPOSITIONAL DEFIANT DISORDER
  15. RISPERIDONE. [Suspect]
     Active Substance: RISPERIDONE
     Indication: ANGER
     Route: 048
  16. RISPERDAL M-TAB [Suspect]
     Active Substance: RISPERIDONE
     Indication: ATTENTION DEFICIT/HYPERACTIVITY DISORDER
     Dosage: IN VARYING DOSES OF 1 MG AND 2 MG
     Route: 048
     Dates: start: 20120501, end: 20130201
  17. RISPERIDONE. [Suspect]
     Active Substance: RISPERIDONE
     Indication: ATTENTION DEFICIT/HYPERACTIVITY DISORDER
     Dosage: IN VARYING DOSES OF 1 MG, 2 MG, 3 MG AND 4 MG
     Route: 048
     Dates: start: 20091015, end: 20130227
  18. RISPERDAL [Suspect]
     Active Substance: RISPERIDONE
     Indication: DRUG THERAPY
  19. RISPERDAL M-TAB [Suspect]
     Active Substance: RISPERIDONE
     Indication: OPPOSITIONAL DEFIANT DISORDER
  20. INVEGA [Suspect]
     Active Substance: PALIPERIDONE
     Indication: MENTAL DISORDER
     Route: 048
     Dates: start: 2017
  21. RISPERIDONE. [Suspect]
     Active Substance: RISPERIDONE
     Indication: AFFECTIVE DISORDER
  22. RISPERIDONE. [Suspect]
     Active Substance: RISPERIDONE
     Indication: DRUG THERAPY
  23. RISPERIDONE. [Suspect]
     Active Substance: RISPERIDONE
     Indication: AGGRESSION
     Dosage: IN VARYING DOSES OF 1 MG AND 2 MG
     Route: 048
     Dates: start: 20120423, end: 20130201
  24. RISPERIDONE. [Suspect]
     Active Substance: RISPERIDONE
     Indication: INSOMNIA

REACTIONS (2)
  - Emotional distress [Unknown]
  - Gynaecomastia [Unknown]
